FAERS Safety Report 21315373 (Version 1)
Quarter: 2022Q3

REPORT INFORMATION
  Report Type: Report from Study
  Country: US (occurrence: US)
  Receive Date: 20220909
  Receipt Date: 20220909
  Transmission Date: 20221026
  Serious: Yes (Other)
  Sender: FDA-Public Use
  Company Number: US-BAUSCH-BL-2022-021624

PATIENT
  Age: 77 Year
  Sex: Female

DRUGS (1)
  1. CUPRIMINE [Suspect]
     Active Substance: PENICILLAMINE
     Indication: Product used for unknown indication
     Dosage: 2C PO IN THE MORNING 1 AT NOON 1 AFTERNOON AND 1 AT BED TIME
     Route: 048

REACTIONS (2)
  - Pneumonia [Not Recovered/Not Resolved]
  - Haemoptysis [Not Recovered/Not Resolved]

NARRATIVE: CASE EVENT DATE: 20210301
